FAERS Safety Report 9990996 (Version 1)
Quarter: 2014Q1

REPORT INFORMATION
  Report Type: Spontaneous
  Country: US (occurrence: US)
  Receive Date: 20140310
  Receipt Date: 20140310
  Transmission Date: 20141002
  Serious: No
  Sender: FDA-Public Use
  Company Number: US-ABBVIE-13P-163-1136427-00

PATIENT
  Sex: Female
  Weight: 72.19 kg

DRUGS (5)
  1. HUMIRA [Suspect]
     Indication: PSORIATIC ARTHROPATHY
  2. MOBIC [Concomitant]
     Indication: PSORIATIC ARTHROPATHY
  3. FLEXERIL [Concomitant]
     Indication: MUSCLE SPASMS
  4. WELLBUTRIN [Concomitant]
     Indication: ANXIETY
  5. HYDROCODONE SR [Concomitant]
     Indication: PAIN

REACTIONS (4)
  - Staphylococcal infection [Recovered/Resolved]
  - Lymphadenopathy [Recovered/Resolved]
  - Lymph node pain [Recovered/Resolved]
  - Drug ineffective [Not Recovered/Not Resolved]
